FAERS Safety Report 4568208-2 (Version None)
Quarter: 2005Q1

REPORT INFORMATION
  Report Type: 
  Country: None (occurrence: None)
  Receive Date: 20050128
  Receipt Date: 20050117
  Transmission Date: 20050727
  Serious: Yes (Death, Hospitalization)
  Sender: FDA-Public Use
  Company Number: A-CH2004-08236

PATIENT
  Age: 53 Year
  Sex: Female

DRUGS (2)
  1. TRACLEER [Suspect]
     Indication: PULMONARY HYPERTENSION
     Dosage: SEE IMAGE
     Route: 048
     Dates: start: 20020603, end: 20020703
  2. TRACLEER [Suspect]
     Indication: PULMONARY HYPERTENSION
     Dosage: SEE IMAGE
     Route: 048
     Dates: start: 20020704, end: 20041121

REACTIONS (11)
  - ASCITES [None]
  - CONDITION AGGRAVATED [None]
  - GASTRITIS HAEMORRHAGIC [None]
  - JUGULAR VEIN DISTENSION [None]
  - LIVER FUNCTION TEST ABNORMAL [None]
  - PAROTITIS [None]
  - PLEURAL EFFUSION [None]
  - RENAL FAILURE ACUTE [None]
  - RESPIRATORY FAILURE [None]
  - RIGHT VENTRICULAR FAILURE [None]
  - SPINAL COMPRESSION FRACTURE [None]
